FAERS Safety Report 5844883-7 (Version None)
Quarter: 2008Q3

REPORT INFORMATION
  Report Type: 
  Country: None (occurrence: None)
  Receive Date: 20080814
  Receipt Date: 20080806
  Transmission Date: 20090109
  Serious: Yes (Other)
  Sender: FDA-Public Use
  Company Number: US-BAYER-200812272BCC

PATIENT
  Age: 64 Year
  Sex: Female
  Weight: 64 kg

DRUGS (10)
  1. ASPIRIN [Suspect]
     Indication: ISCHAEMIC HEART DISEASE PROPHYLAXIS
     Route: 048
     Dates: end: 20000101
  2. TUMS [Concomitant]
  3. FOSAMAX [Concomitant]
  4. ROBITUSSIN [Concomitant]
  5. LEVOTHYROXINE SODIUM [Concomitant]
  6. PSEUDOEPHEDRINE HYDROCHLORIDE [Concomitant]
  7. CHLORPHENIRAMINE MALEATE [Concomitant]
  8. ASCORBIC ACID [Concomitant]
  9. VITAMIN B COMPLEX CAP [Concomitant]
  10. INOSITOL-CHOLINE BITARTRATE [Concomitant]

REACTIONS (4)
  - GASTRIC ULCER [None]
  - HAEMORRHAGE [None]
  - LOSS OF CONSCIOUSNESS [None]
  - NAUSEA [None]
